FAERS Safety Report 5826654-0 (Version None)
Quarter: 2008Q3

REPORT INFORMATION
  Report Type: 
  Country: None (occurrence: None)
  Receive Date: 20080725
  Receipt Date: 20080711
  Transmission Date: 20090109
  Serious: Yes (Death)
  Sender: FDA-Public Use
  Company Number: 2008AL003849

PATIENT
  Age: 70 Year
  Sex: Male
  Weight: 83.0083 kg

DRUGS (9)
  1. DIGOXIN [Suspect]
     Indication: CHRONIC OBSTRUCTIVE PULMONARY DISEASE
     Dosage: 0.125MG DAILY PO
     Route: 048
     Dates: end: 20080411
  2. DILTIAZEM HCL [Concomitant]
  3. COUMADIN [Concomitant]
  4. LASIX [Concomitant]
  5. POTASSIUM CHLORIDE [Concomitant]
  6. ADVAIR DISKUS 100/50 [Concomitant]
  7. XOPENEX [Concomitant]
  8. LIPITOR [Concomitant]
  9. CELEXA [Concomitant]

REACTIONS (2)
  - FATIGUE [None]
  - MALAISE [None]
